FAERS Safety Report 18257029 (Version 9)
Quarter: 2022Q2

REPORT INFORMATION
  Report Type: Report from Study
  Country: US (occurrence: US)
  Receive Date: 20200911
  Receipt Date: 20220407
  Transmission Date: 20220721
  Serious: No
  Sender: FDA-Public Use
  Company Number: NVSC2020US245568

PATIENT
  Age: 48 Year
  Sex: Female

DRUGS (2)
  1. GILENYA [Suspect]
     Active Substance: FINGOLIMOD HYDROCHLORIDE
     Indication: Relapsing-remitting multiple sclerosis
     Dosage: 0.5 MG, QD
     Route: 048
     Dates: start: 20111121
  2. GILENYA [Suspect]
     Active Substance: FINGOLIMOD HYDROCHLORIDE
     Indication: Multiple sclerosis

REACTIONS (14)
  - Back disorder [Unknown]
  - Memory impairment [Unknown]
  - Cognitive disorder [Unknown]
  - Intervertebral disc protrusion [Unknown]
  - Depression [Unknown]
  - Overweight [Unknown]
  - Dry eye [Unknown]
  - General physical condition abnormal [Unknown]
  - COVID-19 [Unknown]
  - Fatigue [Recovered/Resolved]
  - Sinus congestion [Unknown]
  - Dizziness [Unknown]
  - Fatigue [Unknown]
  - Product dose omission issue [Unknown]

NARRATIVE: CASE EVENT DATE: 20111121
